FAERS Safety Report 4952588-X (Version None)
Quarter: 2006Q1

REPORT INFORMATION
  Report Type: 
  Country: None (occurrence: None)
  Receive Date: 20060317
  Receipt Date: 20060306
  Transmission Date: 20060701
  Serious: Yes (Other)
  Sender: FDA-Public Use
  Company Number: SUS1-2004-00611

PATIENT
  Age: 82 Year
  Sex: Male
  Weight: 68 kg

DRUGS (7)
  1. PENTASA [Suspect]
     Indication: INFLAMMATORY BOWEL DISEASE
     Dosage: FOUR 250 MG CAPSULES 3X/DAY TID
     Dates: start: 20040701
  2. IBUPROFEN [Suspect]
     Indication: INFLAMMATORY BOWEL DISEASE
     Dosage: 600 MG 1X/DAY QD
     Dates: start: 20030101, end: 20040901
  3. METOPROLOL (METOPROLOL) [Concomitant]
  4. HYDROCHLOROTHIAZIDE [Concomitant]
  5. NIFEDIPINE [Concomitant]
  6. OMEPRAZOLE [Concomitant]
  7. ASTELIN [Concomitant]

REACTIONS (4)
  - FATIGUE [None]
  - NEPHROPATHY [None]
  - RENAL IMPAIRMENT [None]
  - URINE ANALYSIS ABNORMAL [None]
